FAERS Safety Report 16960810 (Version 5)
Quarter: 2020Q1

REPORT INFORMATION
  Report Type: Spontaneous
  Country: US (occurrence: US)
  Receive Date: 20191025
  Receipt Date: 20200226
  Transmission Date: 20200409
  Serious: Yes (Other)
  Sender: FDA-Public Use
  Company Number: US-PFIZER INC-2019228218

PATIENT
  Age: 71 Year
  Sex: Female
  Weight: 73 kg

DRUGS (3)
  1. IBRANCE [Suspect]
     Active Substance: PALBOCICLIB
     Dosage: 75 MG, CYCLIC (4 DAYS A WEEK ON WITH 7 DAYS OFF FOR 28 DAY CYCLE (TAKE MONDAY, WEDNESDAY, FRIDAY AND
     Route: 048
     Dates: start: 201906, end: 201908
  2. LETROZOLE. [Suspect]
     Active Substance: LETROZOLE
     Indication: BREAST CANCER METASTATIC
     Dosage: UNK
     Dates: start: 201906, end: 201908
  3. IBRANCE [Suspect]
     Active Substance: PALBOCICLIB
     Indication: BREAST CANCER FEMALE
     Dosage: 75 MG, CYCLIC [21 DAYS ON WITH 7 DAYS OFF FOR 28 DAY CYCLE]
     Route: 048

REACTIONS (1)
  - Blood count abnormal [Recovered/Resolved]

NARRATIVE: CASE EVENT DATE: 201906
